FAERS Safety Report 24534737 (Version 1)
Quarter: 2024Q4

REPORT INFORMATION
  Report Type: Spontaneous
  Country: IT (occurrence: IT)
  Receive Date: 20241022
  Receipt Date: 20241022
  Transmission Date: 20250115
  Serious: Yes (Other)
  Sender: CIPLA
  Company Number: IT-MINISAL02-1005480

PATIENT

DRUGS (1)
  1. ESOMEPRAZOLE [Suspect]
     Active Substance: ESOMEPRAZOLE
     Indication: Antacid therapy
     Dosage: 20 MILLIGRAM ( GASTRO-RESISTANT CAPSULE, HARD)
     Route: 048
     Dates: start: 20241004, end: 20241004

REACTIONS (2)
  - Dysentery [Recovered/Resolved]
  - Abdominal pain [Recovered/Resolved]

NARRATIVE: CASE EVENT DATE: 20241004
